FAERS Safety Report 6068251-0 (Version None)
Quarter: 2009Q1

REPORT INFORMATION
  Report Type: 
  Country: None (occurrence: None)
  Receive Date: 20090206
  Receipt Date: 20090126
  Transmission Date: 20090719
  Serious: Yes (Hospitalization)
  Sender: FDA-Public Use
  Company Number: PHHY2009SE02601

PATIENT
  Sex: Female

DRUGS (8)
  1. ACLASTA [Suspect]
     Dosage: UNK
     Dates: start: 20080514
  2. ALVEDON [Concomitant]
  3. LANSOPRAZOLE [Concomitant]
  4. DIOVAN [Concomitant]
  5. PULMICORT-100 [Concomitant]
  6. VENTOLIN [Concomitant]
  7. TENORMIN [Concomitant]
  8. TRADOLAN [Concomitant]

REACTIONS (6)
  - AMNESIA [None]
  - DEPRESSED LEVEL OF CONSCIOUSNESS [None]
  - DYSPHAGIA [None]
  - FATIGUE [None]
  - MYALGIA [None]
  - NAUSEA [None]
